FAERS Safety Report 9419576 (Version 1)
Quarter: 2013Q3

REPORT INFORMATION
  Report Type: Spontaneous
  Country: US (occurrence: US)
  Receive Date: 20130725
  Receipt Date: 20130725
  Transmission Date: 20140515
  Serious: No
  Sender: FDA-Public Use
  Company Number: US-009507513-1307USA013132

PATIENT
  Sex: 0

DRUGS (1)
  1. DULERA [Suspect]
     Dosage: TWO INHALATIONS ONCE OR TWICE DAILY
     Route: 055
     Dates: start: 201202

REACTIONS (3)
  - Incorrect dose administered [Unknown]
  - Product quality issue [Unknown]
  - No adverse event [Unknown]
